FAERS Safety Report 4772904-1 (Version None)
Quarter: 2005Q3

REPORT INFORMATION
  Report Type: 
  Country: None (occurrence: None)
  Receive Date: 20050919
  Receipt Date: 20050822
  Transmission Date: 20060218
  Serious: Yes (Congenital Anomaly, Other)
  Sender: FDA-Public Use
  Company Number: 2005CG01414

PATIENT
  Age: 39 Year
  Sex: Female
  Weight: 85 kg

DRUGS (3)
  1. ATACAND [Suspect]
     Indication: HYPERTENSION
     Route: 048
  2. AVLOCARDYL [Concomitant]
     Indication: HYPERTENSION
     Route: 048
  3. METHYLDOPA [Concomitant]

REACTIONS (8)
  - ABORTION INDUCED [None]
  - CONGENITAL ANOMALY [None]
  - DRUG EXPOSURE DURING PREGNANCY [None]
  - FOETAL DISORDER [None]
  - OLIGOHYDRAMNIOS [None]
  - PREGNANCY [None]
  - RENAL APLASIA [None]
  - RENIN INCREASED [None]
